FAERS Safety Report 15459465 (Version 2)
Quarter: 2018Q4

REPORT INFORMATION
  Report Type: Spontaneous
  Country: US (occurrence: US)
  Receive Date: 20181003
  Receipt Date: 20181213
  Transmission Date: 20190204
  Serious: Yes (Other)
  Sender: FDA-Public Use
  Company Number: US-PFIZER INC-2018392777

PATIENT
  Age: 59 Year
  Sex: Female
  Weight: 57.6 kg

DRUGS (3)
  1. THERMACARE HEATWRAPS [Concomitant]
     Active Substance: ACTIVATED CHARCOAL\IRON\SODIUM
     Indication: BACK PAIN
     Dosage: UNK
     Dates: start: 20180921
  2. LEVOTHYROXINE. [Concomitant]
     Active Substance: LEVOTHYROXINE
     Indication: THYROID DISORDER
     Dosage: 0.75 MG, UNK
  3. HYDROCORTISONE ACETATE. [Suspect]
     Active Substance: HYDROCORTISONE ACETATE
     Dosage: UNK (3-4 TIMES A DAY)

REACTIONS (2)
  - Burns second degree [Unknown]
  - Condition aggravated [Unknown]

NARRATIVE: CASE EVENT DATE: 20180923
